FAERS Safety Report 7906307-5 (Version None)
Quarter: 2011Q4

REPORT INFORMATION
  Report Type: 
  Country: None (occurrence: None)
  Receive Date: 20111110
  Receipt Date: 20111103
  Transmission Date: 20120403
  Serious: Yes (Other)
  Sender: FDA-Public Use
  Company Number: US-AMGEN-USASP2011057450

PATIENT
  Sex: Male
  Weight: 2.5 kg

DRUGS (2)
  1. ENBREL [Suspect]
     Dosage: 25 MG, 2 TIMES/WK
     Route: 064
     Dates: start: 20061201
  2. ENBREL [Suspect]
     Dosage: 25 MG, 2 TIMES/WK
     Dates: start: 20000601, end: 20060501

REACTIONS (1)
  - PREMATURE BABY [None]
